FAERS Safety Report 7723305-5 (Version None)
Quarter: 2011Q3

REPORT INFORMATION
  Report Type: 
  Country: None (occurrence: None)
  Receive Date: 20110901
  Receipt Date: 20110901
  Transmission Date: 20111222
  Serious: Yes (Hospitalization)
  Sender: FDA-Public Use
  Company Number: None

PATIENT
  Age: 57 Year
  Sex: Female
  Weight: 80.7 kg

DRUGS (1)
  1. ISTODAX [Suspect]
     Indication: MYCOSIS FUNGOIDES
     Dosage: 22.4 MG
     Route: 042
     Dates: start: 20101214, end: 20101214

REACTIONS (10)
  - THROMBOCYTOPENIA [None]
  - HYPERCALCAEMIA [None]
  - PLEURAL EFFUSION [None]
  - SEPSIS [None]
  - CONDITION AGGRAVATED [None]
  - RESPIRATORY DISTRESS [None]
  - HEPATIC FUNCTION ABNORMAL [None]
  - DEEP VEIN THROMBOSIS [None]
  - MULTI-ORGAN FAILURE [None]
  - COAGULOPATHY [None]
